FAERS Safety Report 21914230 (Version 1)
Quarter: 2023Q1

REPORT INFORMATION
  Report Type: Spontaneous
  Country: BR (occurrence: BR)
  Receive Date: 20230126
  Receipt Date: 20230126
  Transmission Date: 20230418
  Serious: Yes (Life-Threatening, Hospitalization, Other)
  Sender: FDA-Public Use
  Company Number: BR-BRISTOL-MYERS SQUIBB COMPANY-2023-010398

PATIENT
  Age: 63 Year
  Sex: Male
  Weight: 104 kg

DRUGS (6)
  1. REVLIMID [Suspect]
     Active Substance: LENALIDOMIDE
     Indication: Plasma cell myeloma refractory
     Dosage: DOSE : 5MG;     FREQ : TAKE 21 DAYS, PAUSE 7 (28 DAYS CYCLE)
     Route: 048
     Dates: start: 20220812, end: 20220914
  2. IXAZOMIB [Concomitant]
     Active Substance: IXAZOMIB
     Indication: Product used for unknown indication
  3. DEXAMETHASONE [Concomitant]
     Active Substance: DEXAMETHASONE
     Indication: Product used for unknown indication
  4. METHADONE [Concomitant]
     Active Substance: METHADONE HYDROCHLORIDE
     Indication: Pain
  5. DIPYRONE [Concomitant]
     Active Substance: DIPYRONE
     Indication: Pain
  6. OMEPRAZOLE [Concomitant]
     Active Substance: OMEPRAZOLE
     Indication: Gastric disorder

REACTIONS (6)
  - Diabetes mellitus [Unknown]
  - Dyslipidaemia [Unknown]
  - Varices oesophageal [Unknown]
  - Hepatic cirrhosis [Unknown]
  - Alcoholism [Unknown]
  - COVID-19 [Unknown]

NARRATIVE: CASE EVENT DATE: 20220901
